FAERS Safety Report 9539405 (Version 2)
Quarter: 2013Q3

REPORT INFORMATION
  Report Type: Report from Study
  Country: US (occurrence: US)
  Receive Date: 20130920
  Receipt Date: 20130920
  Transmission Date: 20140515
  Serious: No
  Sender: FDA-Public Use
  Company Number: US-TEVA-431883USA

PATIENT
  Age: 18 Year
  Sex: Male

DRUGS (3)
  1. CLARAVIS [Suspect]
     Dosage: 80 MILLIGRAM DAILY;
     Route: 048
  2. CLARAVIS [Suspect]
     Dosage: 40 MILLIGRAM DAILY;
     Route: 048
  3. EPICREAM [Concomitant]
     Dosage: TOPICAL CREAM

REACTIONS (5)
  - Anger [Recovering/Resolving]
  - Aggression [Recovering/Resolving]
  - Fatigue [Not Recovered/Not Resolved]
  - Insomnia [Unknown]
  - Mood swings [Recovering/Resolving]
